FAERS Safety Report 19460681 (Version 3)
Quarter: 2021Q2

REPORT INFORMATION
  Report Type: Spontaneous
  Country: GB (occurrence: GB)
  Receive Date: 20210625
  Receipt Date: 20210626
  Transmission Date: 20210717
  Serious: Yes (Hospitalization, Other)
  Sender: FDA-Public Use
  Company Number: GB-TEVA-2021-GB-1924588

PATIENT
  Age: 78 Year
  Sex: Male

DRUGS (17)
  1. ASPIRIN. [Concomitant]
     Active Substance: ASPIRIN
     Indication: PRODUCT USED FOR UNKNOWN INDICATION
     Dosage: 75 MILLIGRAM DAILY;
     Route: 065
  2. SODIUM VALPROATE [Suspect]
     Active Substance: VALPROATE SODIUM
     Indication: FOCAL DYSCOGNITIVE SEIZURES
     Route: 065
  3. AMOXICILLIN. [Suspect]
     Active Substance: AMOXICILLIN
     Indication: PNEUMONIA
     Dosage: 3 GRAM DAILY;
     Route: 042
  4. CARBAMAZEPINE. [Concomitant]
     Active Substance: CARBAMAZEPINE
     Indication: FOCAL DYSCOGNITIVE SEIZURES
     Dosage: 800 MILLIGRAM DAILY; TITRATED TO 400 MG TWO TIMES PER DAY
     Route: 065
  5. FLECAINIDE [Concomitant]
     Active Substance: FLECAINIDE
     Indication: PRODUCT USED FOR UNKNOWN INDICATION
     Dosage: 100 MILLIGRAM DAILY;
     Route: 065
  6. TIMOLOL. [Concomitant]
     Active Substance: TIMOLOL
     Indication: PRODUCT USED FOR UNKNOWN INDICATION
     Dosage: APPLIED TO BOTH EYES
     Route: 047
  7. HALOPERIDOL. [Concomitant]
     Active Substance: HALOPERIDOL
     Indication: AGITATION
     Route: 065
  8. KEPPRA [Concomitant]
     Active Substance: LEVETIRACETAM
     Indication: FOCAL DYSCOGNITIVE SEIZURES
     Dosage: 2000 MILLIGRAM DAILY;
     Route: 065
  9. FOLIC ACID. [Concomitant]
     Active Substance: FOLIC ACID
     Indication: PRODUCT USED FOR UNKNOWN INDICATION
     Dosage: 5 MILLIGRAM DAILY; FORMULATION: LIQUID
     Route: 065
  10. BISOPROLOL [Concomitant]
     Active Substance: BISOPROLOL
     Indication: CHEST PAIN
     Route: 065
  11. LAMOTRIGINE. [Concomitant]
     Active Substance: LAMOTRIGINE
     Dosage: AT NIGHT
     Route: 065
  12. DONEPEZIL. [Suspect]
     Active Substance: DONEPEZIL
     Indication: VASCULAR DEMENTIA
     Route: 065
  13. NITROGLYCERIN. [Concomitant]
     Active Substance: NITROGLYCERIN
     Indication: CHEST PAIN
     Route: 065
  14. ATORVASTATIN [Concomitant]
     Active Substance: ATORVASTATIN
     Indication: CHEST PAIN
     Dosage: 40 MILLIGRAM DAILY;
     Route: 065
  15. LAMOTRIGINE. [Concomitant]
     Active Substance: LAMOTRIGINE
     Indication: FOCAL DYSCOGNITIVE SEIZURES
     Dosage: IN THE MORNING
     Route: 065
  16. MEMANTINE. [Concomitant]
     Active Substance: MEMANTINE
     Indication: DEMENTIA ALZHEIMER^S TYPE
     Dosage: AT NIGHT
     Route: 065
  17. LORAZEPAM. [Concomitant]
     Active Substance: LORAZEPAM
     Indication: AGITATION
     Route: 065

REACTIONS (5)
  - Delirium [Unknown]
  - Hyponatraemia [Unknown]
  - Decreased appetite [Unknown]
  - Rash [Recovered/Resolved]
  - Rash [Unknown]
